FAERS Safety Report 4647100-9 (Version None)
Quarter: 2005Q2

REPORT INFORMATION
  Report Type: 
  Country: None (occurrence: None)
  Receive Date: 20050331
  Receipt Date: 20050125
  Transmission Date: 20051028
  Serious: No
  Sender: FDA-Public Use
  Company Number: 05P-163-0288058-00

PATIENT
  Age: 55 Year
  Sex: Female
  Weight: 113 kg

DRUGS (6)
  1. HUMIRA [Suspect]
     Indication: RHEUMATOID ARTHRITIS
     Dosage: 40 MG, 1 IN 2 WK, SUBCUTANEOUS
     Route: 058
     Dates: start: 20040101
  2. BLOOD PRESSURE MEDICATION [Concomitant]
  3. WATER PILL [Concomitant]
  4. MELOXICAM [Concomitant]
  5. RISEDRONATE SODIUM [Concomitant]
  6. DARVOCET [Concomitant]

REACTIONS (2)
  - ABNORMAL DREAMS [None]
  - VASCULAR INJURY [None]
